FAERS Safety Report 20771455 (Version 1)
Quarter: 2022Q2

REPORT INFORMATION
  Report Type: Spontaneous
  Country: JP (occurrence: JP)
  Receive Date: 20220429
  Receipt Date: 20220429
  Transmission Date: 20220721
  Serious: Yes (Other)
  Sender: FDA-Public Use
  Company Number: JP-JAZZ-2022-JP-012916

PATIENT
  Age: 10 Year
  Sex: Female

DRUGS (7)
  1. ASPARAGINASE [Suspect]
     Active Substance: ASPARAGINASE
     Indication: T-cell type acute leukaemia
     Dosage: 5000 UNITS/M2, 8 DOSES EVERY THIRD DAY
     Route: 030
  2. VINCRISTINE [Suspect]
     Active Substance: VINCRISTINE
     Indication: T-cell type acute leukaemia
     Dosage: 1.5 MILLIGRAM/SQ. METER, ADMINISTERED EVERY WEEK, FOUR DOSES
     Route: 042
  3. DAUNORUBICIN [Suspect]
     Active Substance: DAUNORUBICIN
     Indication: T-cell type acute leukaemia
     Dosage: 30 MILLIGRAM/SQ. METER, ADMINISTERED EVERY WEEK, FOUR DOSES
     Route: 042
  4. DEXAMETHASONE [Suspect]
     Active Substance: DEXAMETHASONE
     Indication: T-cell type acute leukaemia
     Dosage: 10 MILLIGRAM/SQ. METER, QD FOR 3 WEEKS
     Route: 048
  5. CYTARABINE [Suspect]
     Active Substance: CYTARABINE
     Indication: T-cell type acute leukaemia
     Dosage: 30 MILLIGRAM, SINGLE ON DAY 5
     Route: 037
  6. METHOTREXATE [Suspect]
     Active Substance: METHOTREXATE
     Indication: T-cell type acute leukaemia
     Dosage: 12 MILLIGRAM, SINGLE ON DAY 5
     Route: 037
  7. PREDNISOLONE [Suspect]
     Active Substance: PREDNISOLONE
     Indication: T-cell type acute leukaemia
     Dosage: 10 MILLIGRAM, SINGLE ON DAY 5
     Route: 037

REACTIONS (1)
  - Posterior reversible encephalopathy syndrome [Recovered/Resolved]
